FAERS Safety Report 14197133 (Version 1)
Quarter: 2017Q4

REPORT INFORMATION
  Report Type: Spontaneous
  Country: ID (occurrence: ID)
  Receive Date: 20171116
  Receipt Date: 20171116
  Transmission Date: 20180321
  Serious: Yes (Hospitalization, Other)
  Sender: FDA-Public Use
  Company Number: ID-TAKEDA-2017MPI010144

PATIENT
  Sex: Female

DRUGS (1)
  1. VELCADE [Suspect]
     Active Substance: BORTEZOMIB
     Indication: PLASMA CELL MYELOMA
     Dosage: 3.5 MG, UNK
     Route: 065

REACTIONS (4)
  - Urinary retention [Unknown]
  - Neuropathy peripheral [Unknown]
  - Thrombosis [Unknown]
  - Sepsis [Unknown]
